FAERS Safety Report 6055770-6 (Version None)
Quarter: 2009Q1

REPORT INFORMATION
  Report Type: 
  Country: None (occurrence: None)
  Receive Date: 20090128
  Receipt Date: 20090120
  Transmission Date: 20090719
  Serious: Yes (Other)
  Sender: FDA-Public Use
  Company Number: US-AVENTIS-200910745GDDC

PATIENT
  Age: 68 Year
  Sex: Male
  Weight: 71.45 kg

DRUGS (4)
  1. TAXOTERE [Suspect]
     Dosage: DOSE: 420 AS TOTAL DOSE THIS COURSE
     Route: 042
     Dates: start: 20081015, end: 20081126
  2. PREDNISONE [Suspect]
     Dosage: DOSE: 840 AS TOTAL DOSE THIS COURSE
     Route: 048
     Dates: start: 20081015, end: 20090113
  3. CODE UNBROKEN [Suspect]
     Dosage: DOSE: 800 AS TOTAL DOSE THIS COURSE
     Route: 048
     Dates: start: 20081015, end: 20090104
  4. DEXAMETHASONE [Suspect]
     Dosage: DOSE: 72 AS TOTAL DOSE THIS COURSE
     Dates: start: 20081015, end: 20081127

REACTIONS (2)
  - RETINAL VEIN OCCLUSION [None]
  - VISION BLURRED [None]
